FAERS Safety Report 14474466 (Version 1)
Quarter: 2018Q1

REPORT INFORMATION
  Report Type: Spontaneous
  Country: US (occurrence: US)
  Receive Date: 20180131
  Receipt Date: 20180131
  Transmission Date: 20180509
  Serious: No
  Sender: FDA-Public Use
  Company Number: None

PATIENT
  Age: 81 Year
  Sex: Female
  Weight: 58.97 kg

DRUGS (1)
  1. ALBUMIN 25% HUMAN [Suspect]
     Active Substance: ALBUMIN HUMAN

REACTIONS (1)
  - Hepatitis B [None]

NARRATIVE: CASE EVENT DATE: 201705
